FAERS Safety Report 9590393 (Version 1)
Quarter: 2013Q4

REPORT INFORMATION
  Report Type: Spontaneous
  Country: US (occurrence: US)
  Receive Date: 20131003
  Receipt Date: 20131003
  Transmission Date: 20140711
  Serious: No
  Sender: FDA-Public Use
  Company Number: US-AMGEN-USASP2012077215

PATIENT
  Age: 34 Year
  Sex: Female

DRUGS (4)
  1. ENBREL [Suspect]
     Indication: PSORIASIS
     Dosage: 50 MG, 2 TIMES/WK
     Dates: start: 2005
  2. MTX                                /00113801/ [Concomitant]
     Dosage: 10 MG, QWK
     Dates: start: 200911
  3. HUMIRA [Concomitant]
     Dosage: UNK
     Dates: start: 200907
  4. USTEKINUMAB [Concomitant]
     Dosage: 90 MG, UNK
     Dates: start: 201107

REACTIONS (7)
  - Arthralgia [Unknown]
  - Red blood cell sedimentation rate increased [Unknown]
  - Joint stiffness [Unknown]
  - Psoriasis [Unknown]
  - Antinuclear antibody positive [Unknown]
  - Tinea pedis [Unknown]
  - Nail dystrophy [Unknown]
